FAERS Safety Report 4673363-X (Version None)
Quarter: 2005Q2

REPORT INFORMATION
  Report Type: 
  Country: None (occurrence: None)
  Receive Date: 20050524
  Receipt Date: 20050524
  Transmission Date: 20051028
  Serious: Yes (Other)
  Sender: FDA-Public Use
  Company Number: None

PATIENT
  Age: 94 Year
  Sex: Female
  Weight: 43.0917 kg

DRUGS (3)
  1. FENTANYL [Suspect]
     Indication: BACK PAIN
     Dosage: ONE PATCH EVERY 3 DAYS TRANSDERMAL
     Route: 062
     Dates: start: 20050501, end: 20050523
  2. FENTANYL [Suspect]
     Indication: SPINAL COLUMN STENOSIS
     Dosage: ONE PATCH EVERY 3 DAYS TRANSDERMAL
     Route: 062
     Dates: start: 20050501, end: 20050523
  3. PROZAC [Concomitant]

REACTIONS (3)
  - DRUG EFFECT DECREASED [None]
  - PHARMACEUTICAL PRODUCT COMPLAINT [None]
  - THERAPEUTIC RESPONSE UNEXPECTED WITH DRUG SUBSTITUTION [None]
